FAERS Safety Report 14475446 (Version 3)
Quarter: 2018Q1

REPORT INFORMATION
  Report Type: Spontaneous
  Country: US (occurrence: US)
  Receive Date: 20180201
  Receipt Date: 20180313
  Transmission Date: 20180509
  Serious: No
  Sender: FDA-Public Use
  Company Number: US-009507513-1802USA000219

PATIENT
  Sex: Female
  Weight: 54.42 kg

DRUGS (6)
  1. DOXYCYCLINE. [Concomitant]
     Active Substance: DOXYCYCLINE
  2. RANITIDINE. [Concomitant]
     Active Substance: RANITIDINE
  3. NEXPLANON [Suspect]
     Active Substance: ETONOGESTREL
     Indication: CONTRACEPTION
     Dosage: 1 DF, EVERY 3 YEARS
     Route: 059
     Dates: start: 20160204, end: 20180202
  4. SERTRALINE HYDROCHLORIDE. [Concomitant]
     Active Substance: SERTRALINE HYDROCHLORIDE
  5. GLYCOPYRROLATE. [Concomitant]
     Active Substance: GLYCOPYRROLATE
  6. NYSTATIN. [Concomitant]
     Active Substance: NYSTATIN

REACTIONS (10)
  - Complication of device removal [Not Recovered/Not Resolved]
  - Device deployment issue [Recovered/Resolved]
  - Nerve injury [Unknown]
  - Ovarian cyst [Not Recovered/Not Resolved]
  - Drug ineffective for unapproved indication [Unknown]
  - Nerve injury [Not Recovered/Not Resolved]
  - Device dislocation [Recovered/Resolved]
  - Device difficult to use [Recovered/Resolved]
  - Hypoaesthesia [Not Recovered/Not Resolved]
  - Complication associated with device [Recovered/Resolved]

NARRATIVE: CASE EVENT DATE: 20160204
